FAERS Safety Report 21111105 (Version 1)
Quarter: 2022Q3

REPORT INFORMATION
  Report Type: Spontaneous
  Country: US (occurrence: None)
  Receive Date: 20220720
  Receipt Date: 20220720
  Transmission Date: 20221027
  Serious: Yes (Life-Threatening, Hospitalization)
  Sender: FDA-Public Use
  Company Number: None

PATIENT
  Age: 51 Year
  Sex: Female
  Weight: 85.5 kg

DRUGS (14)
  1. JARDIANCE [Suspect]
     Active Substance: EMPAGLIFLOZIN
     Indication: Type 2 diabetes mellitus
     Dosage: FREQUENCY : AT BEDTIME;?
     Route: 048
     Dates: start: 20191106, end: 20220704
  2. ORENCIA [Concomitant]
     Active Substance: ABATACEPT
  3. prevastin [Concomitant]
  4. plaquinel [Concomitant]
  5. METFORMIN [Concomitant]
     Active Substance: METFORMIN HYDROCHLORIDE
  6. PEPCID [Concomitant]
     Active Substance: FAMOTIDINE
  7. CYMBALTA [Concomitant]
     Active Substance: DULOXETINE HYDROCHLORIDE
  8. LAMICTAL [Concomitant]
     Active Substance: LAMOTRIGINE
  9. TYLENOL [Concomitant]
  10. VITAMINS [Concomitant]
     Active Substance: VITAMINS
  11. FISH OIL [Concomitant]
     Active Substance: FISH OIL
  12. GLUCOSAMINE [Concomitant]
     Active Substance: GLUCOSAMINE
  13. MAGNESIUM [Concomitant]
     Active Substance: MAGNESIUM
  14. CALCIUM [Concomitant]
     Active Substance: CALCIUM

REACTIONS (1)
  - Euglycaemic diabetic ketoacidosis [None]

NARRATIVE: CASE EVENT DATE: 20220704
